FAERS Safety Report 14801113 (Version 1)
Quarter: 2018Q2

REPORT INFORMATION
  Report Type: Spontaneous
  Country: FR (occurrence: FR)
  Receive Date: 20180424
  Receipt Date: 20180424
  Transmission Date: 20180711
  Serious: Yes (Hospitalization)
  Sender: FDA-Public Use
  Company Number: FR-TEVA-2018-FR-884856

PATIENT
  Age: 86 Year
  Sex: Female
  Weight: 53 kg

DRUGS (7)
  1. AMIODARONE [Concomitant]
     Active Substance: AMIODARONE
     Dosage: .5 DOSAGE FORMS DAILY;
     Route: 048
  2. ACIDE FOLIQUE [Concomitant]
     Active Substance: FOLIC ACID
     Dosage: 10 MILLIGRAM DAILY;
     Route: 048
  3. EUPANTOL [Concomitant]
     Active Substance: PANTOPRAZOLE SODIUM
     Dosage: 1 DOSAGE FORMS DAILY;
     Route: 048
  4. FUROSEMIDE. [Suspect]
     Active Substance: FUROSEMIDE
     Dosage: 2.5 DOSAGE FORMS DAILY;
     Route: 048
  5. LEVOTHYROX 50 MICROGRAMMES, COMPRIM? S?CABLE [Concomitant]
     Active Substance: LEVOTHYROXINE SODIUM
     Dosage: 1 DOSAGE FORMS DAILY;
     Route: 048
  6. GENTALLINE 80 MG, SOLUTION INJECTABLE [Suspect]
     Active Substance: GENTAMICIN SULFATE
     Indication: BACTERIAL PYELONEPHRITIS
     Dosage: 2 DOSAGE FORMS DAILY;
     Route: 030
  7. KAYEXALATE, POUDRE POUR SUSPENSION ORALE ET RECTALE [Concomitant]
     Dosage: 1 DOSAGE FORMS DAILY;
     Route: 048

REACTIONS (2)
  - Acute kidney injury [Recovered/Resolved]
  - Renal tubular disorder [Recovered/Resolved]
